FAERS Safety Report 18045256 (Version 1)
Quarter: 2020Q3

REPORT INFORMATION
  Report Type: Spontaneous
  Country: FR (occurrence: FR)
  Receive Date: 20200720
  Receipt Date: 20200720
  Transmission Date: 20201103
  Serious: Yes (Hospitalization)
  Sender: FDA-Public Use
  Company Number: FR-PFIZER INC-2020274267

PATIENT
  Age: 57 Year
  Sex: Male

DRUGS (3)
  1. XANAX [Suspect]
     Active Substance: ALPRAZOLAM
     Dosage: UNK
     Route: 048
     Dates: start: 2020
  2. TERCIAN [CYAMEMAZINE TARTRATE] [Suspect]
     Active Substance: CYAMEMAZINE
     Dosage: UNK
     Route: 048
     Dates: start: 2020
  3. LEXOMIL [Suspect]
     Active Substance: BROMAZEPAM
     Dosage: UNK
     Route: 048
     Dates: start: 2020

REACTIONS (3)
  - Pneumonia aspiration [Recovered/Resolved]
  - Intentional product misuse [Recovering/Resolving]
  - Altered state of consciousness [Recovered/Resolved]

NARRATIVE: CASE EVENT DATE: 20200616
